FAERS Safety Report 8551088-8 (Version None)
Quarter: 2012Q3

REPORT INFORMATION
  Report Type: 
  Country: None (occurrence: None)
  Receive Date: 20120730
  Receipt Date: 20110830
  Transmission Date: 20120928
  Serious: No
  Sender: FDA-Public Use
  Company Number: US-ALLERGAN-1111058US

PATIENT
  Sex: Female

DRUGS (1)
  1. LATISSE [Suspect]
     Indication: HAIR GROWTH ABNORMAL
     Dosage: 1 GTT, QHS
     Route: 061
     Dates: start: 20110520

REACTIONS (1)
  - EYE HAEMORRHAGE [None]
